FAERS Safety Report 10043527 (Version 1)
Quarter: 2014Q1

REPORT INFORMATION
  Report Type: Spontaneous
  Country: IT (occurrence: IT)
  Receive Date: 20140328
  Receipt Date: 20140328
  Transmission Date: 20141002
  Serious: Yes (Hospitalization)
  Sender: FDA-Public Use
  Company Number: IT-ASTRAZENECA-2014SE19962

PATIENT
  Age: 28551 Day
  Sex: Female

DRUGS (4)
  1. OMEPRAZOLE [Suspect]
     Indication: DRUG ABUSE
     Route: 048
     Dates: start: 20140312, end: 20140312
  2. LORAZEPAM [Suspect]
     Indication: DRUG ABUSE
     Route: 048
     Dates: start: 20140312, end: 20140312
  3. MODURETIC [Concomitant]
     Dosage: 5MG+50MG TABLETS
  4. TRITTICO [Concomitant]

REACTIONS (3)
  - Drug abuse [Recovering/Resolving]
  - Sopor [Recovering/Resolving]
  - Dizziness [Recovering/Resolving]
